FAERS Safety Report 17848791 (Version 3)
Quarter: 2020Q4

REPORT INFORMATION
  Report Type: Report from Study
  Country: DE (occurrence: DE)
  Receive Date: 20200602
  Receipt Date: 20201201
  Transmission Date: 20210113
  Serious: Yes (Life-Threatening, Hospitalization)
  Sender: FDA-Public Use
  Company Number: NVSC2020DE149686

PATIENT
  Age: 74 Year
  Sex: Female

DRUGS (5)
  1. PEGINTERFERON ALFA-2B [Suspect]
     Active Substance: PEGINTERFERON ALFA-2B
     Indication: CHRONIC MYELOID LEUKAEMIA
     Dosage: 30 UG
     Route: 065
     Dates: start: 20140107
  2. RIVAROXABAN [Concomitant]
     Active Substance: RIVAROXABAN
     Indication: ACUTE MYOCARDIAL INFARCTION
     Route: 065
  3. METRONIDAZOLE. [Concomitant]
     Active Substance: METRONIDAZOLE
     Indication: HELICOBACTER GASTRITIS
     Route: 065
  4. RIVAROXABAN [Concomitant]
     Active Substance: RIVAROXABAN
     Indication: ATRIAL FIBRILLATION
  5. NILOTINIB [Suspect]
     Active Substance: NILOTINIB
     Indication: CHRONIC MYELOID LEUKAEMIA
     Dosage: 300 MG, BID
     Route: 048
     Dates: start: 20130927

REACTIONS (5)
  - Fall [Recovering/Resolving]
  - Gastroenteritis clostridial [Recovering/Resolving]
  - Angina pectoris [Recovering/Resolving]
  - Dyspnoea [Recovering/Resolving]
  - Dizziness [Recovering/Resolving]

NARRATIVE: CASE EVENT DATE: 20200425
